FAERS Safety Report 12138782 (Version 2)
Quarter: 2016Q1

REPORT INFORMATION
  Report Type: Report from Study
  Country: DE (occurrence: DE)
  Receive Date: 20160302
  Receipt Date: 20160303
  Transmission Date: 20160526
  Serious: Yes (Other)
  Sender: FDA-Public Use
  Company Number: DE-ABBVIE-15K-062-1505423-00

PATIENT
  Age: 58 Year
  Sex: Male

DRUGS (2)
  1. HUMIRA [Suspect]
     Active Substance: ADALIMUMAB
     Indication: ANKYLOSING SPONDYLITIS
     Route: 058
     Dates: start: 20121201, end: 20151215
  2. HUMIRA [Suspect]
     Active Substance: ADALIMUMAB
     Route: 058
     Dates: start: 20160112

REACTIONS (7)
  - Pollakiuria [Unknown]
  - Obesity [Unknown]
  - Haematuria [Unknown]
  - Bladder papilloma [Unknown]
  - Urinary tract infection [Unknown]
  - Micturition urgency [Unknown]
  - Dysuria [Unknown]

NARRATIVE: CASE EVENT DATE: 201512
